FAERS Safety Report 4405098-2 (Version None)
Quarter: 2004Q3

REPORT INFORMATION
  Report Type: 
  Country: None (occurrence: None)
  Receive Date: 20040716
  Receipt Date: 20040702
  Transmission Date: 20050211
  Serious: Yes (Hospitalization)
  Sender: FDA-Public Use
  Company Number: 174182

PATIENT
  Age: 64 Year
  Sex: Male
  Weight: 68.0396 kg

DRUGS (3)
  1. AVONEX [Suspect]
     Indication: MULTIPLE SCLEROSIS
     Dosage: 30 MCG QW IM
     Route: 030
     Dates: start: 20010101, end: 20030301
  2. AVONEX [Suspect]
     Indication: MULTIPLE SCLEROSIS
     Dosage: 30 MCG QW IM
     Route: 030
     Dates: start: 20030605
  3. MULTIVITAMIN [Concomitant]

REACTIONS (8)
  - CONDITION AGGRAVATED [None]
  - FALL [None]
  - GALLBLADDER DISORDER [None]
  - HEAD INJURY [None]
  - MULTIPLE SCLEROSIS [None]
  - NAUSEA [None]
  - STRESS SYMPTOMS [None]
  - VOMITING [None]
